FAERS Safety Report 6870700-2 (Version None)
Quarter: 2010Q3

REPORT INFORMATION
  Report Type: 
  Country: None (occurrence: None)
  Receive Date: 20100723
  Receipt Date: 20090526
  Transmission Date: 20110219
  Serious: No
  Sender: FDA-Public Use
  Company Number: A0829528A

PATIENT
  Age: 41 Year
  Sex: Female

DRUGS (7)
  1. OLUX [Suspect]
     Indication: CUTANEOUS LUPUS ERYTHEMATOSUS
     Dosage: 0PCT TWICE PER DAY
     Route: 061
     Dates: start: 20090511, end: 20090513
  2. PREDNISONE [Concomitant]
     Indication: ARTHRITIS
     Dosage: 5MG PER DAY
  3. PLAQUENIL                          /00072601/ [Concomitant]
     Dosage: 200MG TWICE PER DAY
  4. DIOVAN [Concomitant]
  5. NIFEDIPINE [Concomitant]
     Dosage: 30MG PER DAY
  6. PROTONIX [Concomitant]
     Dosage: 40MG PER DAY
  7. NAPROSYN [Concomitant]
     Indication: ARTHRITIS
     Dosage: 500MG TWICE PER DAY

REACTIONS (1)
  - DRUG INEFFECTIVE [None]
